FAERS Safety Report 4650619-8 (Version None)
Quarter: 2005Q2

REPORT INFORMATION
  Report Type: 
  Country: None (occurrence: None)
  Receive Date: 20050503
  Receipt Date: 20041021
  Transmission Date: 20051028
  Serious: Yes (Other)
  Sender: FDA-Public Use
  Company Number: PHBS2004BR13970

PATIENT
  Age: 64 Year
  Sex: Male
  Weight: 96 kg

DRUGS (7)
  1. TAXOTERE [Concomitant]
     Dosage: 30 MG, QW
     Route: 065
     Dates: start: 20020301, end: 20041201
  2. ANDROCUR [Concomitant]
     Route: 065
  3. ZOLADEX [Concomitant]
     Route: 065
  4. CASODEX [Concomitant]
     Route: 065
  5. LUPRON [Concomitant]
     Route: 065
  6. NEO DECAPEPTYL [Concomitant]
     Route: 065
  7. ZOMETA [Suspect]
     Indication: PROSTATE CANCER
     Dosage: 4 MG, QMO
     Dates: start: 20020822, end: 20050113

REACTIONS (5)
  - ASEPTIC NECROSIS BONE [None]
  - BONE DEBRIDEMENT [None]
  - BONE TRIMMING [None]
  - PROSTHESIS USER [None]
  - TOOTH EXTRACTION [None]
